FAERS Safety Report 4617514-1 (Version None)
Quarter: 2005Q1

REPORT INFORMATION
  Report Type: 
  Country: None (occurrence: None)
  Receive Date: 20050322
  Receipt Date: 20050309
  Transmission Date: 20050727
  Serious: Yes (Death)
  Sender: FDA-Public Use
  Company Number: CLOF-10002

PATIENT
  Age: 13 Year
  Sex: Female

DRUGS (1)
  1. CLOLAR [Suspect]
     Indication: ACUTE LYMPHOCYTIC LEUKAEMIA
     Dosage: 52 MG/M2 QD IV
     Route: 042
     Dates: start: 20050116, end: 20050119

REACTIONS (3)
  - CARDIAC ARREST [None]
  - MEDICATION ERROR [None]
  - TREMOR [None]
